FAERS Safety Report 5625016-9 (Version None)
Quarter: 2008Q1

REPORT INFORMATION
  Report Type: 
  Country: None (occurrence: None)
  Receive Date: 20080213
  Receipt Date: 20080208
  Transmission Date: 20080703
  Serious: Yes (Other)
  Sender: FDA-Public Use
  Company Number: GB-WYE-G01035408

PATIENT
  Sex: Female

DRUGS (1)
  1. VENLAFAXINE HYDROCHLORIDE [Suspect]
     Dosage: UNKNOWN
     Route: 048
     Dates: start: 20080208, end: 20080208

REACTIONS (5)
  - DYSPNOEA [None]
  - NAUSEA [None]
  - OEDEMA MOUTH [None]
  - PHARYNGEAL OEDEMA [None]
  - VOMITING [None]
